FAERS Safety Report 7923380-9 (Version None)
Quarter: 2011Q4

REPORT INFORMATION
  Report Type: 
  Country: None (occurrence: None)
  Receive Date: 20111117
  Receipt Date: 20110202
  Transmission Date: 20120403
  Serious: No
  Sender: FDA-Public Use
  Company Number: US-AMGEN-USASP2010002020

PATIENT
  Age: 63 Year
  Sex: Female
  Weight: 92.971 kg

DRUGS (1)
  1. ENBREL [Suspect]
     Indication: RHEUMATOID ARTHRITIS
     Dosage: 50 MG, QWK
     Route: 058
     Dates: start: 20101012

REACTIONS (5)
  - CHILLS [None]
  - FATIGUE [None]
  - PAIN [None]
  - HEADACHE [None]
  - INFLUENZA LIKE ILLNESS [None]
